FAERS Safety Report 7179225-0 (Version None)
Quarter: 2010Q4

REPORT INFORMATION
  Report Type: 
  Country: None (occurrence: None)
  Receive Date: 20101221
  Receipt Date: 20101213
  Transmission Date: 20110411
  Serious: Yes (Other)
  Sender: FDA-Public Use
  Company Number: US-PFIZER INC-2010172731

PATIENT
  Sex: Female
  Weight: 65.8 kg

DRUGS (2)
  1. XALATAN [Suspect]
     Indication: GLAUCOMA
     Dosage: UNK
  2. LIPITOR [Concomitant]
     Dosage: UNK

REACTIONS (1)
  - MACULAR DEGENERATION [None]
